FAERS Safety Report 23699323 (Version 3)
Quarter: 2024Q2

REPORT INFORMATION
  Report Type: Report from Study
  Country: CN (occurrence: CN)
  Receive Date: 20240402
  Receipt Date: 20240506
  Transmission Date: 20240716
  Serious: Yes (Death, Hospitalization)
  Sender: FDA-Public Use
  Company Number: CN-Eisai-EC-2024-162860

PATIENT
  Age: 73 Year
  Sex: Male
  Weight: 42.5 kg

DRUGS (15)
  1. LENVATINIB [Suspect]
     Active Substance: LENVATINIB
     Indication: Hepatocellular carcinoma
     Route: 048
     Dates: start: 20230331, end: 20230405
  2. LENVATINIB [Suspect]
     Active Substance: LENVATINIB
     Route: 048
     Dates: start: 20230407, end: 20230623
  3. LENVATINIB [Suspect]
     Active Substance: LENVATINIB
     Route: 048
     Dates: start: 20230625, end: 20230712
  4. LENVATINIB [Suspect]
     Active Substance: LENVATINIB
     Route: 048
     Dates: start: 20230714, end: 20231114
  5. LENVATINIB [Suspect]
     Active Substance: LENVATINIB
     Route: 048
     Dates: start: 20231116, end: 20240313
  6. TORIPALIMAB [Suspect]
     Active Substance: TORIPALIMAB
     Indication: Hepatocellular carcinoma
     Route: 042
     Dates: start: 20230331, end: 20231007
  7. TORIPALIMAB [Suspect]
     Active Substance: TORIPALIMAB
     Dosage: BLINDED
     Route: 042
     Dates: start: 20231115, end: 20240228
  8. ILAPRAZOLE [Concomitant]
     Active Substance: ILAPRAZOLE
  9. ENTECAVIR [Concomitant]
     Active Substance: ENTECAVIR
     Indication: Hepatitis B
     Route: 048
     Dates: start: 20210420
  10. Compound Glycyrrhizin [Concomitant]
     Route: 048
     Dates: start: 20230419
  11. NIFEDIPINE [Concomitant]
     Active Substance: NIFEDIPINE
     Indication: Hypertension
     Route: 048
     Dates: start: 20230624
  12. Human Epidermal Growth Factor [Concomitant]
     Indication: Skin ulcer
     Route: 003
     Dates: start: 20231212
  13. MONTMORILLONITE [Concomitant]
     Active Substance: MONTMORILLONITE
     Indication: Diarrhoea
     Route: 048
     Dates: start: 20240310, end: 20240315
  14. LORATADINE [Concomitant]
     Active Substance: LORATADINE
     Indication: Rash
     Route: 048
     Dates: start: 20240314
  15. CEFACLOR [Concomitant]
     Active Substance: CEFACLOR
     Indication: Pneumonia
     Route: 048
     Dates: start: 20240228, end: 20240305

REACTIONS (2)
  - Pneumonia [Fatal]
  - Gastroenteritis [Not Recovered/Not Resolved]

NARRATIVE: CASE EVENT DATE: 20240317
